FAERS Safety Report 10544072 (Version 3)
Quarter: 2014Q4

REPORT INFORMATION
  Report Type: Spontaneous
  Country: IT (occurrence: None)
  Receive Date: 20141023
  Receipt Date: 20141106
  Transmission Date: 20150529
  Serious: Yes (Other)
  Sender: FDA-Public Use
  Company Number: 2580293

PATIENT
  Age: 66 Year
  Sex: Female
  Weight: 69 kg

DRUGS (1)
  1. IRINOTECAN HYDROCHLORIDE. [Suspect]
     Active Substance: IRINOTECAN HYDROCHLORIDE
     Indication: DUCTAL ADENOCARCINOMA OF PANCREAS
     Dosage: 288 MG MILLIGRAM(S), CYCLICAL, INTRAVENOUS DRIP
     Route: 041
     Dates: start: 20141002, end: 2014

REACTIONS (6)
  - Chest pain [None]
  - Infusion related reaction [None]
  - Acute coronary syndrome [None]
  - Nausea [None]
  - Cardiac disorder [None]
  - Hypersensitivity [None]

NARRATIVE: CASE EVENT DATE: 20141002
